FAERS Safety Report 12312652 (Version 4)
Quarter: 2016Q2

REPORT INFORMATION
  Report Type: Spontaneous
  Country: TR (occurrence: TR)
  Receive Date: 20160428
  Receipt Date: 20160520
  Transmission Date: 20160815
  Serious: Yes (Death, Hospitalization, Other)
  Sender: FDA-Public Use
  Company Number: TR-AMGEN-TURSP2016053517

PATIENT
  Age: 17 Year
  Sex: Female
  Weight: 66 kg

DRUGS (5)
  1. LEVOFLOXACIN. [Concomitant]
     Active Substance: LEVOFLOXACIN
     Dosage: 750 MG, QD
     Route: 042
     Dates: start: 20160320
  2. BLINCYTO [Suspect]
     Active Substance: BLINATUMOMAB
     Dosage: 24 MUG, CONTINUING
     Route: 042
     Dates: start: 20160405, end: 20160414
  3. BLINCYTO [Suspect]
     Active Substance: BLINATUMOMAB
     Indication: ACUTE LYMPHOCYTIC LEUKAEMIA REFRACTORY
     Dosage: 8 MUG, CONTINUING
     Route: 042
     Dates: start: 20160329, end: 20160414
  4. TEICOPLANIN [Concomitant]
     Active Substance: TEICOPLANIN
     Indication: SINUSITIS
     Dosage: 10 MG/KG, QD
     Route: 042
     Dates: start: 20160223
  5. SULPERAZON [Concomitant]
     Active Substance: CEFOPERAZONE SODIUM\SULBACTAM SODIUM
     Indication: SINUSITIS
     Dosage: 20 MG/KG, QD
     Route: 042
     Dates: start: 20160314

REACTIONS (10)
  - Acute lymphocytic leukaemia recurrent [Fatal]
  - Off label use [Unknown]
  - Respiratory arrest [Fatal]
  - Neutropenia [Unknown]
  - Pyrexia [Unknown]
  - Confusional state [Unknown]
  - Hallucination [Unknown]
  - Cardiac arrest [Fatal]
  - Sinusitis fungal [Fatal]
  - Bilirubin conjugated increased [Unknown]

NARRATIVE: CASE EVENT DATE: 201604
